FAERS Safety Report 8426898-8 (Version None)
Quarter: 2012Q2

REPORT INFORMATION
  Report Type: 
  Country: None (occurrence: None)
  Receive Date: 20120611
  Receipt Date: 20120611
  Transmission Date: 20120825
  Serious: Yes (Death)
  Sender: FDA-Public Use
  Company Number: US-PFIZER INC-2003039698

PATIENT

DRUGS (3)
  1. ZIPRASIDONE HCL [Suspect]
     Route: 048
  2. VERAPAMIL HCL [Suspect]
     Indication: HYPERTENSION
     Route: 048
  3. AMLODIPINE BESYLATE [Suspect]
     Route: 048

REACTIONS (1)
  - COMPLETED SUICIDE [None]
